FAERS Safety Report 17515265 (Version 2)
Quarter: 2020Q4

REPORT INFORMATION
  Report Type: Spontaneous
  Country: US (occurrence: US)
  Receive Date: 20200309
  Receipt Date: 20201202
  Transmission Date: 20210113
  Serious: Yes (Other)
  Sender: FDA-Public Use
  Company Number: US-SA-2020SA059676

PATIENT

DRUGS (1)
  1. ZANTAC 75 [Suspect]
     Active Substance: RANITIDINE HYDROCHLORIDE
     Dosage: FOUR OR MORE TIMES PER WEEK.
     Route: 065
     Dates: start: 198901, end: 201909

REACTIONS (2)
  - Anxiety [Unknown]
  - Renal cancer [Unknown]

NARRATIVE: CASE EVENT DATE: 20181203
